FAERS Safety Report 11859947 (Version 1)
Quarter: 2015Q4

REPORT INFORMATION
  Report Type: Spontaneous
  Country: US (occurrence: US)
  Receive Date: 20151222
  Receipt Date: 20151222
  Transmission Date: 20160305
  Serious: No
  Sender: FDA-Public Use
  Company Number: US-THERATECHNOLOGIES, INC.-TH-2015-00046

PATIENT
  Age: 61 Year
  Sex: Female
  Weight: 66.74 kg

DRUGS (10)
  1. POTASSIUM [Concomitant]
     Active Substance: POTASSIUM
     Indication: PROPHYLAXIS
     Dosage: 20 MILLIEQUIVALENTS
     Route: 048
     Dates: start: 2005
  2. EGRIFTA [Suspect]
     Active Substance: TESAMORELIN
     Indication: LIPOHYPERTROPHY
     Dosage: 2 MILLIGRAM
     Route: 058
     Dates: start: 201502, end: 20150714
  3. VERAPAMIL [Concomitant]
     Active Substance: VERAPAMIL HYDROCHLORIDE
     Indication: HYPERTENSION
     Dosage: 120 MILLIGRAM
     Route: 048
     Dates: start: 2005
  4. CALCIUM + D3 [Concomitant]
     Active Substance: CALCIUM\CHOLECALCIFEROL
     Dosage: 2 DOSAGE FORMS
     Route: 048
     Dates: start: 2013
  5. TRIUMEQ [Concomitant]
     Active Substance: ABACAVIR SULFATE\DOLUTEGRAVIR SODIUM\LAMIVUDINE
     Indication: HIV INFECTION
     Dosage: 1 DOSAGE FORMS
     Route: 048
     Dates: start: 2015
  6. ALLOPURINOL. [Concomitant]
     Active Substance: ALLOPURINOL
     Indication: GOUT
     Dosage: 300 MILLIGRAM
     Route: 048
     Dates: start: 2014
  7. OMEPRAZOLE. [Concomitant]
     Active Substance: OMEPRAZOLE
     Indication: GASTROSTOMY
     Dosage: 20 MILLIGRAM
     Route: 048
     Dates: start: 2005
  8. HYDROCHLOROTHIAZIDE. [Concomitant]
     Active Substance: HYDROCHLOROTHIAZIDE
     Indication: HYPERTENSION
     Dosage: 25 MILLIGRAM
     Route: 048
     Dates: start: 2005
  9. ATORVASTATIN [Concomitant]
     Active Substance: ATORVASTATIN
     Indication: GOUT
     Dosage: 10 MILLIGRAM
     Route: 048
     Dates: start: 2014
  10. GABAPENTIN. [Concomitant]
     Active Substance: GABAPENTIN
     Indication: NEUROPATHY PERIPHERAL
     Dosage: 900 MILLIGRAM
     Route: 048
     Dates: start: 2005

REACTIONS (2)
  - Pain in extremity [Not Recovered/Not Resolved]
  - Headache [Recovered/Resolved]

NARRATIVE: CASE EVENT DATE: 20150710
